FAERS Safety Report 4418128-9 (Version None)
Quarter: 2004Q3

REPORT INFORMATION
  Report Type: 
  Country: None (occurrence: None)
  Receive Date: 20040809
  Receipt Date: 20040610
  Transmission Date: 20050211
  Serious: Yes (Life-Threatening)
  Sender: FDA-Public Use
  Company Number: 200412014JP

PATIENT
  Age: 72 Year
  Sex: Male
  Weight: 54 kg

DRUGS (14)
  1. ALLEGRA [Suspect]
     Indication: RASH
     Route: 048
     Dates: start: 20040606, end: 20040608
  2. NIPOLAZIN [Suspect]
     Indication: RASH
     Route: 048
     Dates: start: 20040606, end: 20040608
  3. OXYCONTIN [Suspect]
     Indication: CANCER PAIN
     Route: 048
     Dates: start: 20040602, end: 20040607
  4. NOVAMIN [Concomitant]
     Indication: NAUSEA
     Route: 048
     Dates: start: 20040606, end: 20040607
  5. BESACOLIN [Concomitant]
     Indication: URINARY RETENTION
     Route: 048
     Dates: start: 20040606, end: 20040607
  6. PENTCILLIN [Concomitant]
     Indication: PNEUMONIA
     Route: 041
     Dates: start: 20040608, end: 20040608
  7. SLOW-K [Concomitant]
     Route: 048
  8. MUCOSTA [Concomitant]
     Route: 048
  9. BUFFERIN [Concomitant]
     Route: 048
  10. RISUMIC [Concomitant]
     Route: 048
  11. MAGNESIUM OXIDE [Concomitant]
     Dosage: FREQUENCY: AFTER MEALS
     Route: 048
  12. LOXONIN [Concomitant]
     Route: 048
     Dates: start: 20040619
  13. CYTOTEC [Concomitant]
     Dosage: FREQUENCY: AFTER MEALS
     Route: 048
     Dates: start: 20040619
  14. ALLOID [Concomitant]
     Dosage: FREQUENCY: BEFORE MEALS AND AT BEDTIME
     Route: 048
     Dates: start: 20040619

REACTIONS (17)
  - ACTIVATED PARTIAL THROMBOPLASTIN TIME PROLONGED [None]
  - BLOOD PH DECREASED [None]
  - C-REACTIVE PROTEIN INCREASED [None]
  - DYSPNOEA [None]
  - HEPATIC FAILURE [None]
  - HEPATITIS C ANTIBODY POSITIVE [None]
  - HEPATITIS FULMINANT [None]
  - LYMPHOCYTE COUNT DECREASED [None]
  - MULTI-ORGAN FAILURE [None]
  - OEDEMA PERIPHERAL [None]
  - OXYGEN SATURATION DECREASED [None]
  - PLATELET COUNT DECREASED [None]
  - PROTHROMBIN TIME PROLONGED [None]
  - RASH [None]
  - RENAL IMPAIRMENT [None]
  - RESPIRATORY TRACT INFECTION [None]
  - SUPRAVENTRICULAR TACHYCARDIA [None]
